FAERS Safety Report 8369571-7 (Version None)
Quarter: 2012Q2

REPORT INFORMATION
  Report Type: 
  Country: None (occurrence: None)
  Receive Date: 20120517
  Receipt Date: 20120517
  Transmission Date: 20120825
  Serious: Yes (Life-Threatening)
  Sender: FDA-Public Use
  Company Number: None

PATIENT
  Age: 67 Year
  Sex: Female
  Weight: 68.0396 kg

DRUGS (1)
  1. GILENYA [Suspect]
     Indication: MULTIPLE SCLEROSIS
     Dosage: 1 PILL DAILY PO
     Route: 048
     Dates: start: 20111020, end: 20120509

REACTIONS (5)
  - BACK PAIN [None]
  - HEADACHE [None]
  - CONTUSION [None]
  - VOMITING [None]
  - ARTHRALGIA [None]
